FAERS Safety Report 6289944-6 (Version None)
Quarter: 2009Q3

REPORT INFORMATION
  Report Type: 
  Country: None (occurrence: None)
  Receive Date: 20090730
  Receipt Date: 20080925
  Transmission Date: 20100115
  Serious: No
  Sender: FDA-Public Use
  Company Number: US-BRISTOL-MYERS SQUIBB COMPANY-14348056

PATIENT
  Age: 98 Year
  Sex: Female

DRUGS (7)
  1. COUMADIN [Suspect]
     Indication: VENOUS THROMBOSIS
     Dosage: 1 DF = 2 TAB ;ON 23SEP08: DRUG INTERRUPTED; ON 24SEP08: DOSE CHANGED TO 1MG, 1AND HALF TABLETS QD.
     Dates: start: 20030101
  2. CODEINE PHOSPHATE AND ACETAMINOPHEN [Suspect]
     Indication: ARTHRALGIA
     Dosage: 1 DOSAGE FORM = 1 TABLET
     Dates: start: 20080801
  3. KLOR-CON [Concomitant]
  4. CALCIUM + VITAMIN D [Concomitant]
  5. DIGOXIN [Concomitant]
  6. LASIX [Concomitant]
  7. SPIRONOLACTONE [Concomitant]

REACTIONS (1)
  - INTERNATIONAL NORMALISED RATIO INCREASED [None]
